FAERS Safety Report 15447948 (Version 2)
Quarter: 2018Q4

REPORT INFORMATION
  Report Type: Other
  Country: ES (occurrence: ES)
  Receive Date: 20180928
  Receipt Date: 20181001
  Transmission Date: 20190204
  Serious: Yes (Other)
  Sender: FDA-Public Use
  Company Number: ES-ACTELION-A-US2018-179502

PATIENT
  Age: 38 Year
  Sex: Female

DRUGS (2)
  1. VENTAVIS [Suspect]
     Active Substance: ILOPROST
     Indication: PRODUCT USED FOR UNKNOWN INDICATION
     Dosage: UNK
     Route: 055
     Dates: start: 200805
  2. ASPIRIN. [Suspect]
     Active Substance: ASPIRIN
     Indication: PRODUCT USED FOR UNKNOWN INDICATION
     Route: 065

REACTIONS (9)
  - Skin necrosis [Unknown]
  - Tissue injury [Unknown]
  - Poor peripheral circulation [Unknown]
  - Headache [Unknown]
  - Vomiting [Unknown]
  - Infection susceptibility increased [Unknown]
  - Skin ulcer [Unknown]
  - Skin disorder [Unknown]
  - Pain [Unknown]

NARRATIVE: CASE EVENT DATE: 201710
